FAERS Safety Report 9695858 (Version 3)
Quarter: 2014Q1

REPORT INFORMATION
  Report Type: Spontaneous
  Country: US (occurrence: US)
  Receive Date: 20131119
  Receipt Date: 20140103
  Transmission Date: 20141002
  Serious: No
  Sender: FDA-Public Use
  Company Number: US-009507513-1311USA002322

PATIENT
  Sex: Female
  Weight: 122.9 kg

DRUGS (3)
  1. PROVENTIL [Suspect]
     Indication: ASTHMA
     Dosage: 90 MICROGRAM, TWO PUFFS, QID
     Route: 055
     Dates: start: 201210, end: 2013
  2. PROVENTIL [Suspect]
     Indication: CHRONIC OBSTRUCTIVE PULMONARY DISEASE
     Dosage: UNK
  3. TRAMADOL HYDROCHLORIDE [Concomitant]

REACTIONS (8)
  - Sinusitis [Unknown]
  - Tinnitus [Unknown]
  - Dizziness [Unknown]
  - Drug dose omission [Unknown]
  - Wrong technique in drug usage process [Unknown]
  - Product quality issue [Unknown]
  - Off label use [Unknown]
  - Nausea [Unknown]
